FAERS Safety Report 13258531 (Version 2)
Quarter: 2017Q1

REPORT INFORMATION
  Report Type: Spontaneous
  Country: BR (occurrence: BR)
  Receive Date: 20170222
  Receipt Date: 20170227
  Transmission Date: 20170428
  Serious: Yes (Other)
  Sender: FDA-Public Use
  Company Number: BR-BEH-2017078266

PATIENT
  Age: 4 Year
  Sex: Female

DRUGS (2)
  1. HUMAN IMMUNOGLOBULIN IV (INN) [Suspect]
     Active Substance: HUMAN IMMUNOGLOBULIN G
     Indication: HYPOGAMMAGLOBULINAEMIA
     Route: 042
  2. HUMAN IMMUNOGLOBULIN IV (INN) [Suspect]
     Active Substance: HUMAN IMMUNOGLOBULIN G
     Indication: METABOLIC DISORDER

REACTIONS (3)
  - Vomiting [Recovered/Resolved]
  - Headache [Recovered/Resolved]
  - Meningitis aseptic [Recovered/Resolved]
